FAERS Safety Report 26002463 (Version 2)
Quarter: 2025Q4

REPORT INFORMATION
  Report Type: Spontaneous
  Country: EU (occurrence: EU)
  Receive Date: 20251105
  Receipt Date: 20251120
  Transmission Date: 20260118
  Serious: No
  Sender: TAKEDA
  Company Number: EU-TAKEDA-2025TUS097848

PATIENT
  Age: 3 Year
  Sex: Male
  Weight: 16.8 kg

DRUGS (1)
  1. ELAPRASE [Suspect]
     Active Substance: IDURSULFASE
     Indication: Mucopolysaccharidosis II
     Dosage: 2 MILLIGRAM/MILLILITRE, 1/WEEK

REACTIONS (2)
  - No adverse event [Unknown]
  - Product preparation issue [Unknown]

NARRATIVE: CASE EVENT DATE: 20251029
